FAERS Safety Report 9705850 (Version 1)
Quarter: 2013Q4

REPORT INFORMATION
  Report Type: Spontaneous
  Country: US (occurrence: US)
  Receive Date: 20131122
  Receipt Date: 20131122
  Transmission Date: 20140711
  Serious: Yes (Other)
  Sender: FDA-Public Use
  Company Number: US-B.I. PHARMACEUTICALS,INC./RIDGEFIELD-2013-BI-38184BP

PATIENT
  Sex: Female

DRUGS (2)
  1. DULCOLAX TABLETS [Suspect]
     Indication: CONSTIPATION
     Route: 048
     Dates: start: 2008
  2. DULCOLAX STOOL SOFTENER [Suspect]
     Indication: FAECES HARD
     Dosage: LIQUID GELS
     Route: 048
     Dates: start: 2008

REACTIONS (3)
  - Cerebrovascular accident [Recovered/Resolved with Sequelae]
  - Dementia [Not Recovered/Not Resolved]
  - Aphasia [Not Recovered/Not Resolved]
